FAERS Safety Report 7808241-8 (Version None)
Quarter: 2011Q4

REPORT INFORMATION
  Report Type: 
  Country: None (occurrence: None)
  Receive Date: 20111012
  Receipt Date: 20110928
  Transmission Date: 20120403
  Serious: Yes (Other)
  Sender: FDA-Public Use
  Company Number: AR-AMGEN-ARGSP2011051386

PATIENT
  Age: 48 Year
  Sex: Female

DRUGS (2)
  1. ENBREL [Suspect]
     Indication: RHEUMATOID ARTHRITIS
     Dosage: 25 MG, 2XWEEKLY
     Dates: start: 20090115
  2. METHOTREXATE [Concomitant]

REACTIONS (3)
  - DRUG INEFFECTIVE [None]
  - WEIGHT INCREASED [None]
  - SCLERITIS [None]
